FAERS Safety Report 9587324 (Version 1)
Quarter: 2013Q4

REPORT INFORMATION
  Report Type: Spontaneous
  Country: NO (occurrence: NO)
  Receive Date: 20131003
  Receipt Date: 20131003
  Transmission Date: 20140711
  Serious: Yes (Hospitalization)
  Sender: FDA-Public Use
  Company Number: NO-TEVA-433858ISR

PATIENT
  Age: 53 Year
  Sex: Male

DRUGS (2)
  1. SIMVASTATIN [Suspect]
     Indication: CAROTID ARTERIOSCLEROSIS
     Dosage: 20 MILLIGRAM DAILY;
     Route: 048
     Dates: end: 20130615
  2. ALBYL-E [Concomitant]
     Indication: ARTERIOSCLEROSIS
     Dosage: 75 MILLIGRAM DAILY;
     Route: 048

REACTIONS (5)
  - Arthralgia [Recovered/Resolved]
  - Platelet count decreased [Recovered/Resolved]
  - Influenza like illness [Recovered/Resolved]
  - Myalgia [Recovered/Resolved]
  - White blood cell count decreased [Recovered/Resolved]
